FAERS Safety Report 21703590 (Version 2)
Quarter: 2023Q1

REPORT INFORMATION
  Report Type: Report from Study
  Country: GB (occurrence: GB)
  Receive Date: 20221209
  Receipt Date: 20230227
  Transmission Date: 20230418
  Serious: No
  Sender: FDA-Public Use
  Company Number: GB-FEDR-MF-002-5011005-20200320-0001SG

PATIENT
  Age: 61 Year
  Sex: Female
  Weight: 66 kg

DRUGS (4)
  1. FEDRATINIB [Suspect]
     Active Substance: FEDRATINIB
     Indication: Primary myelofibrosis
     Route: 048
     Dates: start: 20200213, end: 20200309
  2. EXJADE [Concomitant]
     Active Substance: DEFERASIROX
     Indication: Iron overload
     Route: 048
  3. RAMIPRIL [Concomitant]
     Active Substance: RAMIPRIL
     Indication: Hypertension
     Route: 048
     Dates: start: 201709
  4. LEVOTHYROXINE [Concomitant]
     Active Substance: LEVOTHYROXINE
     Indication: Hypothyroidism
     Route: 048
     Dates: start: 20170908

REACTIONS (1)
  - Vitamin B1 decreased [Recovering/Resolving]

NARRATIVE: CASE EVENT DATE: 20200310
